FAERS Safety Report 8109568-5 (Version None)
Quarter: 2012Q1

REPORT INFORMATION
  Report Type: 
  Country: None (occurrence: None)
  Receive Date: 20120202
  Receipt Date: 20120114
  Transmission Date: 20120608
  Serious: No
  Sender: FDA-Public Use
  Company Number: US-AMGEN-USASP2011067637

PATIENT
  Age: 43 Year
  Sex: Female

DRUGS (2)
  1. ENBREL [Suspect]
     Indication: PSORIATIC ARTHROPATHY
     Dosage: 50 MG, QWK
     Dates: start: 20111103
  2. ENBREL [Suspect]
     Indication: PSORIASIS

REACTIONS (9)
  - PAIN IN EXTREMITY [None]
  - NECK PAIN [None]
  - INJECTION SITE PAIN [None]
  - SUBCUTANEOUS ABSCESS [None]
  - PSORIASIS [None]
  - INJECTION SITE ERYTHEMA [None]
  - INJECTION SITE URTICARIA [None]
  - INJECTION SITE WARMTH [None]
  - PSORIATIC ARTHROPATHY [None]
